FAERS Safety Report 7097535-2 (Version None)
Quarter: 2010Q4

REPORT INFORMATION
  Report Type: 
  Country: None (occurrence: None)
  Receive Date: 20101111
  Receipt Date: 20101103
  Transmission Date: 20110411
  Serious: Yes (Other)
  Sender: FDA-Public Use
  Company Number: US-MERCK-0903USA01374

PATIENT
  Age: 58 Year
  Sex: Female

DRUGS (2)
  1. FOSAMAX [Suspect]
     Indication: OSTEOPOROSIS
     Route: 048
     Dates: start: 20010101, end: 20080501
  2. FOSAMAX [Suspect]
     Route: 048
     Dates: start: 20010801

REACTIONS (23)
  - ABSCESS [None]
  - ADVERSE EVENT [None]
  - BONE DENSITY DECREASED [None]
  - EDENTULOUS [None]
  - EXOSTOSIS [None]
  - FISTULA [None]
  - FISTULA DISCHARGE [None]
  - GALLBLADDER DISORDER [None]
  - GINGIVAL DISORDER [None]
  - HYPOAESTHESIA ORAL [None]
  - IMPAIRED HEALING [None]
  - JAW DISORDER [None]
  - ORAL INFECTION [None]
  - ORAL TORUS [None]
  - OSTEOMYELITIS [None]
  - OSTEONECROSIS [None]
  - OSTEONECROSIS OF JAW [None]
  - PAIN IN JAW [None]
  - PARAESTHESIA [None]
  - PERIODONTAL DISEASE [None]
  - PERIODONTITIS [None]
  - STOMATITIS [None]
  - TRISMUS [None]
